FAERS Safety Report 4599507-6 (Version None)
Quarter: 2005Q1

REPORT INFORMATION
  Report Type: 
  Country: None (occurrence: None)
  Receive Date: 20050307
  Receipt Date: 20050228
  Transmission Date: 20050727
  Serious: Yes (Hospitalization)
  Sender: FDA-Public Use
  Company Number: BW-BRISTOL-MYERS SQUIBB COMPANY-12878716

PATIENT
  Age: 55 Year
  Sex: Male

DRUGS (2)
  1. EFAVIRENZ [Suspect]
     Route: 048
     Dates: start: 20050216
  2. COMBIVIR [Suspect]
     Dosage: 900 MG TOTAL DAILY DOSE
     Route: 048
     Dates: start: 20050216

REACTIONS (2)
  - DEHYDRATION [None]
  - GASTROENTERITIS [None]
